FAERS Safety Report 12208235 (Version 1)
Quarter: 2016Q1

REPORT INFORMATION
  Report Type: Spontaneous
  Country: CA (occurrence: CA)
  Receive Date: 20160324
  Receipt Date: 20160324
  Transmission Date: 20160526
  Serious: Yes (Death, Other)
  Sender: FDA-Public Use
  Company Number: CA-PURDUE PHARMA-CAN-2016-0006560

PATIENT
  Age: 45 Year
  Sex: Female

DRUGS (9)
  1. CLONAZEPAM. [Concomitant]
     Active Substance: CLONAZEPAM
     Dosage: 2 MG, BID
     Route: 048
     Dates: start: 20121108, end: 20121109
  2. HYDROMORPH CONTIN 6 MG [Suspect]
     Active Substance: HYDROMORPHONE
     Indication: PRODUCT USED FOR UNKNOWN INDICATION
     Dosage: UNK
     Route: 048
  3. RISPERIDONE. [Concomitant]
     Active Substance: RISPERIDONE
     Indication: PRODUCT USED FOR UNKNOWN INDICATION
     Dosage: 0.5 MG, HS
     Route: 048
  4. CLONAZEPAM. [Concomitant]
     Active Substance: CLONAZEPAM
     Indication: PRODUCT USED FOR UNKNOWN INDICATION
     Dosage: 2 MG, TID
     Route: 048
  5. TRAZODONE [Concomitant]
     Active Substance: TRAZODONE HYDROCHLORIDE
     Indication: PRODUCT USED FOR UNKNOWN INDICATION
     Dosage: 100 MG, HS
     Route: 048
  6. TRAZODONE [Concomitant]
     Active Substance: TRAZODONE HYDROCHLORIDE
     Dosage: 150 MG, HS
     Route: 048
     Dates: start: 20121108, end: 20121109
  7. RISPERIDONE. [Concomitant]
     Active Substance: RISPERIDONE
     Dosage: 0.5 MG, PM
     Route: 048
     Dates: start: 20121108, end: 20121109
  8. CLONAZEPAM. [Concomitant]
     Active Substance: CLONAZEPAM
     Dosage: 1 MG, TID
     Route: 065
     Dates: start: 20121107
  9. DOMPERIDONE [Concomitant]
     Active Substance: DOMPERIDONE
     Indication: PRODUCT USED FOR UNKNOWN INDICATION
     Dosage: 10 MG, TID
     Route: 048
     Dates: end: 20121109

REACTIONS (20)
  - Pneumonia aspiration [Unknown]
  - Delirium [Unknown]
  - Hyperhidrosis [Unknown]
  - Malaise [Unknown]
  - Intentional overdose [Fatal]
  - Mydriasis [Unknown]
  - Lethargy [Unknown]
  - Confusional state [Unknown]
  - Unresponsive to stimuli [Fatal]
  - Hallucination [Unknown]
  - Depression [Unknown]
  - Dizziness [Unknown]
  - Apnoea [Unknown]
  - Heart rate decreased [Unknown]
  - Gait disturbance [Unknown]
  - Sopor [Unknown]
  - Respiratory rate decreased [Unknown]
  - Snoring [Unknown]
  - Pyrexia [Unknown]
  - Agitation [Unknown]

NARRATIVE: CASE EVENT DATE: 20121104
